FAERS Safety Report 8205814-8 (Version None)
Quarter: 2012Q1

REPORT INFORMATION
  Report Type: 
  Country: None (occurrence: None)
  Receive Date: 20120309
  Receipt Date: 20120305
  Transmission Date: 20120608
  Serious: Yes (Hospitalization)
  Sender: FDA-Public Use
  Company Number: 120086

PATIENT
  Sex: Female

DRUGS (1)
  1. SUPREP BOWEL PREP KIT [Suspect]
     Indication: COLONOSCOPY
     Dosage: UNK

REACTIONS (3)
  - INTESTINAL PERFORATION [None]
  - HAEMORRHAGE [None]
  - ABDOMINAL PAIN [None]
